FAERS Safety Report 6915201-8 (Version None)
Quarter: 2010Q3

REPORT INFORMATION
  Report Type: 
  Country: None (occurrence: None)
  Receive Date: 20100805
  Receipt Date: 20100805
  Transmission Date: 20110219
  Serious: No
  Sender: FDA-Public Use
  Company Number: None

PATIENT
  Age: 63 Year
  Sex: Male

DRUGS (1)
  1. IODIXANOL [Suspect]
     Dosage: ONCE IV
     Route: 042
     Dates: start: 20100618, end: 20100618

REACTIONS (3)
  - PRURITUS [None]
  - RASH [None]
  - URTICARIA [None]
